FAERS Safety Report 4353924-8 (Version None)
Quarter: 2004Q2

REPORT INFORMATION
  Report Type: 
  Country: None (occurrence: None)
  Receive Date: 20040506
  Receipt Date: 20040112
  Transmission Date: 20050107
  Serious: No
  Sender: FDA-Public Use
  Company Number: US-GLAXOSMITHKLINE-A0492597A

PATIENT
  Age: 64 Year
  Sex: Female

DRUGS (8)
  1. AVANDAMET [Suspect]
     Route: 048
  2. AMARYL [Concomitant]
  3. GLUCOPHAGE [Concomitant]
  4. SYNTHROID [Concomitant]
  5. PREMARIN [Concomitant]
  6. NORVASC [Concomitant]
  7. CELEBREX [Concomitant]
  8. SONATA [Concomitant]

REACTIONS (1)
  - BLOOD GLUCOSE DECREASED [None]
